FAERS Safety Report 21755545 (Version 7)
Quarter: 2025Q1

REPORT INFORMATION
  Report Type: Spontaneous
  Country: DE (occurrence: DE)
  Receive Date: 20221220
  Receipt Date: 20250312
  Transmission Date: 20250408
  Serious: Yes (Life-Threatening, Hospitalization, Other)
  Sender: Kenvue
  Company Number: DE-JNJFOC-20221232484

PATIENT

DRUGS (36)
  1. IBUPROFEN [Suspect]
     Active Substance: IBUPROFEN
     Indication: Product used for unknown indication
     Route: 065
  2. OCREVUS [Suspect]
     Active Substance: OCRELIZUMAB
     Indication: Relapsing multiple sclerosis
     Route: 042
     Dates: start: 20190514, end: 20190528
  3. OCREVUS [Suspect]
     Active Substance: OCRELIZUMAB
     Route: 042
     Dates: start: 20191202
  4. OCRELIZUMAB [Suspect]
     Active Substance: OCRELIZUMAB
     Indication: Multiple sclerosis
     Route: 042
     Dates: start: 20190513, end: 20190528
  5. OCRELIZUMAB [Suspect]
     Active Substance: OCRELIZUMAB
     Indication: Relapsing multiple sclerosis
     Route: 042
     Dates: start: 20191202
  6. OCRELIZUMAB [Suspect]
     Active Substance: OCRELIZUMAB
     Route: 042
     Dates: start: 20190514, end: 20190528
  7. COMIRNATY [Concomitant]
     Indication: COVID-19 prophylaxis
     Dosage: 30 MICROGRAM, ONCE A DAY
     Route: 065
     Dates: start: 20211201, end: 20211201
  8. COMIRNATY [Concomitant]
     Dosage: 30 MICROGRAM, ONCE A DAY
     Route: 065
     Dates: start: 20210519, end: 20210519
  9. COMIRNATY [Concomitant]
     Route: 065
     Dates: start: 20210408, end: 20210408
  10. CHOLECALCIFEROL [Concomitant]
     Active Substance: CHOLECALCIFEROL
     Indication: Vitamin D deficiency
     Dosage: 20000 INTERNATIONAL UNIT, ONCE IN A WEEK
     Route: 065
     Dates: start: 20200715
  11. PREDNISOLONE [Concomitant]
     Active Substance: PREDNISOLONE
     Indication: Otitis media
     Dosage: 20 MILLIGRAM, ONCE A DAY
     Route: 048
     Dates: start: 20240820, end: 20240826
  12. PREDNISOLONE [Concomitant]
     Active Substance: PREDNISOLONE
     Indication: Nasal congestion
     Dosage: 20 MILLIGRAM, ONCE A DAY
     Route: 048
     Dates: start: 20240827, end: 20240829
  13. PREDNISOLONE [Concomitant]
     Active Substance: PREDNISOLONE
     Indication: Chronic sinusitis
     Route: 048
     Dates: start: 20240130, end: 20240208
  14. PFIZER-BIONTECH COVID-19 VACCINE [Concomitant]
     Active Substance: TOZINAMERAN
     Indication: COVID-19 prophylaxis
     Route: 030
     Dates: start: 20210408, end: 20210408
  15. PFIZER-BIONTECH COVID-19 VACCINE [Concomitant]
     Active Substance: TOZINAMERAN
     Route: 030
     Dates: start: 20210519, end: 20210519
  16. PFIZER-BIONTECH COVID-19 VACCINE [Concomitant]
     Active Substance: TOZINAMERAN
     Route: 030
     Dates: start: 20211201, end: 20211201
  17. CLINDAMYCIN HYDROCHLORIDE [Concomitant]
     Active Substance: CLINDAMYCIN HYDROCHLORIDE
     Indication: Bacterial infection
     Dosage: 600 MILLIGRAM, TWICE A DAY
     Route: 048
     Dates: start: 20240321, end: 20240326
  18. Momenta [Concomitant]
     Indication: Product used for unknown indication
     Route: 045
     Dates: start: 20240607
  19. Hysan [Concomitant]
     Indication: Chronic sinusitis
     Route: 045
     Dates: start: 202309, end: 202310
  20. Omni biotic ab 10 [Concomitant]
     Indication: Prophylaxis
     Route: 048
     Dates: start: 20240321, end: 20240326
  21. Rhinivict Nasal [Concomitant]
     Indication: Bacterial infection
     Route: 045
     Dates: start: 20240321, end: 20240326
  22. OFLOXACIN [Concomitant]
     Active Substance: OFLOXACIN
     Indication: Conjunctivitis
     Route: 065
     Dates: start: 20240405, end: 20240412
  23. XYLOMETAZOLINE HYDROCHLORIDE [Concomitant]
     Active Substance: XYLOMETAZOLINE HYDROCHLORIDE
     Indication: Chronic sinusitis
     Route: 045
     Dates: start: 202309, end: 202310
  24. XYLOMETAZOLINE HYDROCHLORIDE [Concomitant]
     Active Substance: XYLOMETAZOLINE HYDROCHLORIDE
     Route: 065
     Dates: start: 20240513, end: 20240520
  25. DOXYCYCLINE [Concomitant]
     Active Substance: DOXYCYCLINE
     Indication: Chronic sinusitis
     Route: 048
     Dates: start: 20231012, end: 20231021
  26. HERBALS [Concomitant]
     Active Substance: HERBALS
     Indication: Chronic sinusitis
     Route: 042
     Dates: start: 202309, end: 202309
  27. HERBALS [Concomitant]
     Active Substance: HERBALS
     Route: 048
     Dates: start: 20230515, end: 20230522
  28. CIPROFLOXACIN\FLUOCINOLONE ACETONIDE [Concomitant]
     Active Substance: CIPROFLOXACIN\FLUOCINOLONE ACETONIDE
     Indication: Otitis media
     Route: 065
     Dates: start: 20240806, end: 20240809
  29. DYMISTA [Concomitant]
     Active Substance: AZELASTINE HYDROCHLORIDE\FLUTICASONE PROPIONATE
     Indication: Chronic sinusitis
     Route: 045
     Dates: start: 20240130
  30. Amoxi clavulan puren [Concomitant]
     Indication: Bacterial infection
     Route: 048
     Dates: start: 20240306, end: 20240312
  31. Amoxi clavulan puren [Concomitant]
     Indication: C-reactive protein
  32. DIETARY SUPPLEMENT\HERBALS [Concomitant]
     Active Substance: DIETARY SUPPLEMENT\HERBALS
     Indication: Headache
     Route: 065
     Dates: start: 20240513, end: 20240520
  33. DIETARY SUPPLEMENT\HERBALS [Concomitant]
     Active Substance: DIETARY SUPPLEMENT\HERBALS
     Indication: Ear pain
  34. DIETARY SUPPLEMENT\HERBALS [Concomitant]
     Active Substance: DIETARY SUPPLEMENT\HERBALS
     Indication: Chronic sinusitis
     Route: 048
     Dates: start: 20231230, end: 20240108
  35. DESLORATADINE [Concomitant]
     Active Substance: DESLORATADINE
     Indication: Chronic sinusitis
     Route: 048
     Dates: start: 20231012, end: 20231123
  36. PANTOPRAZOLE SODIUM [Concomitant]
     Active Substance: PANTOPRAZOLE SODIUM
     Indication: Product used for unknown indication
     Route: 048
     Dates: start: 20240820, end: 20240829

REACTIONS (5)
  - Agranulocytosis [Recovered/Resolved]
  - Neutropenia [Recovered/Resolved]
  - Urinary tract infection [Recovered/Resolved]
  - Cystitis noninfective [Recovered/Resolved]
  - Chronic sinusitis [Not Recovered/Not Resolved]

NARRATIVE: CASE EVENT DATE: 20221101
